FAERS Safety Report 12810657 (Version 2)
Quarter: 2016Q4

REPORT INFORMATION
  Report Type: Spontaneous
  Country: US (occurrence: US)
  Receive Date: 20161005
  Receipt Date: 20161017
  Transmission Date: 20170207
  Serious: Yes (Hospitalization, Other)
  Sender: FDA-Public Use
  Company Number: US-AUROBINDO-AUR-APL-2016-11968

PATIENT
  Age: 37 Year
  Sex: Male

DRUGS (2)
  1. BUSPIRONE [Concomitant]
     Active Substance: BUSPIRONE HYDROCHLORIDE
     Indication: PRODUCT USED FOR UNKNOWN INDICATION
     Dosage: 15 MG, TWO TIMES A DAY
     Route: 065
     Dates: start: 2007
  2. VENLAFAXINE [Suspect]
     Active Substance: VENLAFAXINE HYDROCHLORIDE
     Indication: PRODUCT USED FOR UNKNOWN INDICATION
     Dosage: 150 MG, TWO TIMES A DAY
     Route: 065
     Dates: start: 2007

REACTIONS (2)
  - Cardiac failure [Recovered/Resolved]
  - Toxicity to various agents [Recovered/Resolved]
